FAERS Safety Report 17712110 (Version 1)
Quarter: 2020Q2

REPORT INFORMATION
  Report Type: Report from Study
  Country: CA (occurrence: CA)
  Receive Date: 20200427
  Receipt Date: 20200427
  Transmission Date: 20200714
  Serious: Yes (Other)
  Sender: FDA-Public Use
  Company Number: CA-JNJFOC-20200424434

PATIENT

DRUGS (1)
  1. REMICADE [Suspect]
     Active Substance: INFLIXIMAB
     Indication: CROHN^S DISEASE
     Route: 064
     Dates: start: 20131210

REACTIONS (3)
  - Ventricular hypoplasia [Unknown]
  - Foetal exposure during pregnancy [Unknown]
  - Atrophy [Unknown]
